FAERS Safety Report 20601829 (Version 2)
Quarter: 2022Q2

REPORT INFORMATION
  Report Type: Spontaneous
  Country: US (occurrence: US)
  Receive Date: 20220316
  Receipt Date: 20220510
  Transmission Date: 20220721
  Serious: Yes (Other)
  Sender: FDA-Public Use
  Company Number: US-VIIV HEALTHCARE LIMITED-US2022AMR044144

PATIENT
  Age: 23 Year
  Sex: Male

DRUGS (21)
  1. RILPIVIRINE [Suspect]
     Active Substance: RILPIVIRINE
     Indication: HIV infection
     Dosage: UNK, Z (MONTHLY)
     Route: 030
     Dates: start: 202106, end: 202202
  2. RILPIVIRINE [Suspect]
     Active Substance: RILPIVIRINE
     Dosage: UNK UNK, Z, MONTHLY
     Route: 030
     Dates: start: 202106, end: 202202
  3. RILPIVIRINE [Suspect]
     Active Substance: RILPIVIRINE
     Dosage: UNK UNK, Z, MONTHLY
     Route: 030
     Dates: start: 202106, end: 202202
  4. RILPIVIRINE [Suspect]
     Active Substance: RILPIVIRINE
     Dosage: UNK UNK, Z, MONTHLY
     Route: 030
     Dates: start: 202106, end: 202202
  5. RILPIVIRINE [Suspect]
     Active Substance: RILPIVIRINE
     Dosage: UNK UNK, Z, MONTHLY
     Route: 030
     Dates: start: 202106, end: 202202
  6. RILPIVIRINE [Suspect]
     Active Substance: RILPIVIRINE
     Dosage: UNK UNK, Z, MONTHLY
     Route: 030
     Dates: start: 202106, end: 202202
  7. RILPIVIRINE [Suspect]
     Active Substance: RILPIVIRINE
     Dosage: UNK UNK, Z, MONTHLY
     Route: 030
     Dates: start: 202106, end: 202202
  8. RILPIVIRINE [Suspect]
     Active Substance: RILPIVIRINE
     Dosage: UNK UNK, Z, MONTHLY
     Route: 030
     Dates: start: 202106, end: 202202
  9. CABOTEGRAVIR [Suspect]
     Active Substance: CABOTEGRAVIR
     Indication: HIV infection
     Dosage: UNK, Z (MONTHLY)
     Route: 030
     Dates: start: 202106, end: 202202
  10. CABOTEGRAVIR [Suspect]
     Active Substance: CABOTEGRAVIR
     Dosage: UNK UNK, Z, MONTHLY
     Route: 030
     Dates: start: 202106, end: 202202
  11. CABOTEGRAVIR [Suspect]
     Active Substance: CABOTEGRAVIR
     Dosage: UNK UNK, Z, MONTHLY
     Route: 030
     Dates: start: 202106, end: 202202
  12. CABOTEGRAVIR [Suspect]
     Active Substance: CABOTEGRAVIR
     Dosage: UNK UNK, Z, MONTHLY
     Route: 030
     Dates: start: 202106, end: 202202
  13. CABOTEGRAVIR [Suspect]
     Active Substance: CABOTEGRAVIR
     Dosage: UNK UNK, Z, MONTHLY
     Route: 030
     Dates: start: 202106, end: 202202
  14. CABOTEGRAVIR [Suspect]
     Active Substance: CABOTEGRAVIR
     Dosage: UNK UNK, Z, MONTHLY
     Route: 030
     Dates: start: 202106, end: 202202
  15. CABOTEGRAVIR [Suspect]
     Active Substance: CABOTEGRAVIR
     Dosage: UNK UNK, Z, MONTHLY
     Route: 030
     Dates: start: 202106, end: 202202
  16. CABOTEGRAVIR [Suspect]
     Active Substance: CABOTEGRAVIR
     Dosage: UNK UNK, Z, MONTHLY
     Route: 030
     Dates: start: 202106, end: 202202
  17. BACTRIM [Suspect]
     Active Substance: SULFAMETHOXAZOLE\TRIMETHOPRIM
     Indication: Product used for unknown indication
     Dosage: 1 DF, Z, 800/160MG, ON MONDAY, WEDNESDAY AND FRIDAY
     Route: 048
  18. CANNABIS SATIVA SUBSP. INDICA TOP [Suspect]
     Active Substance: CANNABIS SATIVA SUBSP. INDICA TOP
     Indication: Product used for unknown indication
     Route: 065
  19. DOVATO [Concomitant]
     Active Substance: DOLUTEGRAVIR SODIUM\LAMIVUDINE
     Indication: Product used for unknown indication
     Route: 065
  20. VOCABRIA [Concomitant]
     Active Substance: CABOTEGRAVIR SODIUM
     Indication: Product used for unknown indication
     Route: 048
  21. EDURANT [Concomitant]
     Active Substance: RILPIVIRINE HYDROCHLORIDE
     Indication: Product used for unknown indication
     Route: 048

REACTIONS (2)
  - Pathogen resistance [Unknown]
  - Virologic failure [Unknown]
